FAERS Safety Report 5284581-4 (Version None)
Quarter: 2007Q1

REPORT INFORMATION
  Report Type: 
  Country: None (occurrence: None)
  Receive Date: 20061215
  Receipt Date: 20060414
  Transmission Date: 20070707
  Serious: Yes (Life-Threatening, Hospitalization, Other)
  Sender: FDA-Public Use
  Company Number: HQWYE922821APR06

PATIENT
  Age: 35 Year
  Sex: Male
  Weight: 68.1 kg

DRUGS (3)
  1. EFFEXOR XR [Suspect]
     Indication: DEPRESSION
     Dosage: 37.5 MG 1X PER 1 DAY, ORAL
     Route: 048
     Dates: start: 20060127, end: 20060209
  2. ATIVAN [Concomitant]
  3. ZOLPIDEM TARTRATE [Concomitant]

REACTIONS (2)
  - PARANOIA [None]
  - SUICIDE ATTEMPT [None]
